FAERS Safety Report 15631049 (Version 1)
Quarter: 2018Q4

REPORT INFORMATION
  Report Type: Report from Study
  Country: None (occurrence: AU)
  Receive Date: 20181119
  Receipt Date: 20181119
  Transmission Date: 20190205
  Serious: Yes (Hospitalization, Other)
  Sender: FDA-Public Use
  Company Number: AU-ABBVIE-18K-008-2454792-00

PATIENT
  Age: 43 Year
  Sex: Female

DRUGS (1)
  1. HUMIRA [Suspect]
     Active Substance: ADALIMUMAB
     Indication: PSORIASIS
     Route: 058
     Dates: start: 2018, end: 201810

REACTIONS (12)
  - Pain in extremity [Recovering/Resolving]
  - Skin exfoliation [Recovering/Resolving]
  - Cardiac infection [Recovering/Resolving]
  - Malaise [Unknown]
  - Immune system disorder [Recovering/Resolving]
  - Drug ineffective [Not Recovered/Not Resolved]
  - Asthenia [Recovering/Resolving]
  - Malaise [Unknown]
  - Dyspnoea [Recovering/Resolving]
  - Lung infection [Recovering/Resolving]
  - Heart rate increased [Unknown]
  - Pyrexia [Recovering/Resolving]

NARRATIVE: CASE EVENT DATE: 2018
